FAERS Safety Report 17332741 (Version 1)
Quarter: 2020Q1

REPORT INFORMATION
  Report Type: Spontaneous
  Country: FR (occurrence: FR)
  Receive Date: 20200128
  Receipt Date: 20200128
  Transmission Date: 20200409
  Serious: Yes (Hospitalization)
  Sender: FDA-Public Use
  Company Number: FR-ABBVIE-20K-056-3251904-00

PATIENT
  Age: 81 Year
  Sex: Male

DRUGS (2)
  1. JAKAVI [Suspect]
     Active Substance: RUXOLITINIB
     Indication: LEUKAEMIA
     Route: 048
     Dates: start: 20191209, end: 20191229
  2. VENETOCLAX. [Suspect]
     Active Substance: VENETOCLAX
     Indication: LEUKAEMIA
     Route: 048
     Dates: start: 20191211

REACTIONS (1)
  - Interstitial lung disease [Not Recovered/Not Resolved]

NARRATIVE: CASE EVENT DATE: 20191230
